FAERS Safety Report 4816640-1 (Version None)
Quarter: 2005Q4

REPORT INFORMATION
  Report Type: 
  Country: None (occurrence: None)
  Receive Date: 20051101
  Receipt Date: 20051020
  Transmission Date: 20060501
  Serious: Yes (Hospitalization)
  Sender: FDA-Public Use
  Company Number: CH-BRISTOL-MYERS SQUIBB COMPANY-13153382

PATIENT
  Age: 64 Year
  Sex: Female

DRUGS (7)
  1. APROVEL [Suspect]
     Indication: HYPERTENSION
     Route: 048
     Dates: start: 20041111, end: 20050927
  2. AULIN [Suspect]
     Indication: SHOULDER PAIN
     Route: 048
     Dates: start: 20050909, end: 20050913
  3. FROBEN [Suspect]
     Indication: SHOULDER PAIN
     Route: 048
     Dates: start: 20050913, end: 20050927
  4. PRIADEL [Suspect]
     Dosage: YEARS
     Route: 048
     Dates: start: 19970101, end: 20050927
  5. ACTONEL [Concomitant]
     Route: 048
  6. CALCIMAGON-D3 [Concomitant]
     Route: 048
  7. LUDIOMIL [Concomitant]
     Route: 048

REACTIONS (2)
  - DRUG LEVEL INCREASED [None]
  - GAIT DISTURBANCE [None]
